FAERS Safety Report 7025092-5 (Version None)
Quarter: 2010Q3

REPORT INFORMATION
  Report Type: 
  Country: None (occurrence: None)
  Receive Date: 20100929
  Receipt Date: 20100920
  Transmission Date: 20110219
  Serious: Yes (Death, Hospitalization, Other)
  Sender: FDA-Public Use
  Company Number: GER/GER/10/0016054

PATIENT
  Age: 76 Year
  Sex: Female
  Weight: 78 kg

DRUGS (6)
  1. CIPROFLOXACIN [Suspect]
     Indication: DIVERTICULITIS
     Dosage: 500 MG, 2 IN 1 D, ORAL
     Route: 048
     Dates: start: 20100416, end: 20100419
  2. IBUPROFEN [Suspect]
     Indication: PRODUCT USED FOR UNKNOWN INDICATION
     Dosage: 300 MG, 1 IN 4 D, ORAL
     Route: 048
     Dates: start: 20070101, end: 20100405
  3. DICLOFENAC SODIUM [Suspect]
     Indication: PRODUCT USED FOR UNKNOWN INDICATION
     Dosage: 1 IN 1 AS REQUIRED, ORAL
     Route: 048
     Dates: start: 20000101, end: 20100419
  4. ATACAND HCT [Suspect]
     Indication: HYPERTENSION
     Dosage: 28.5 MG, 1 IN 1 D, ORAL
     Route: 048
  5. ATACAND [Suspect]
     Indication: HYPERTENSION
     Dosage: 16 MG, 1 IN 1 D, ORAL
     Route: 048
     Dates: start: 20091101, end: 20100419
  6. MESALAMINE [Suspect]
     Indication: DIVERTICULITIS
     Dosage: 1 DOSAGE FORMS, 1 IN 1 D, RECTAL
     Route: 054
     Dates: start: 20100326, end: 20100415

REACTIONS (3)
  - COLITIS [None]
  - RENAL FAILURE ACUTE [None]
  - SEPTIC SHOCK [None]
